FAERS Safety Report 7515066-X (Version None)
Quarter: 2011Q2

REPORT INFORMATION
  Report Type: 
  Country: None (occurrence: None)
  Receive Date: 20110601
  Receipt Date: 20110525
  Transmission Date: 20111010
  Serious: Yes (Other)
  Sender: FDA-Public Use
  Company Number: FR-ASTELLAS-2011EU003241

PATIENT
  Age: 31 Year
  Sex: Female
  Weight: 32 kg

DRUGS (8)
  1. PROGRAF [Suspect]
     Dosage: 1 MG, UNKNOWN/D
     Route: 042
     Dates: start: 20110525
  2. MYCOPHENOLATE MEFETIL [Suspect]
     Dosage: UNK
     Route: 065
  3. PROGRAF [Suspect]
     Dosage: 1.5 MG/DAY, UNKNOWN/D
     Route: 065
     Dates: start: 20110525
  4. SPORANOX [Suspect]
     Dosage: UNK
     Route: 065
  5. SIMULECT [Suspect]
     Dosage: UNK
     Route: 065
  6. PROGRAF [Suspect]
     Indication: PROPHYLAXIS AGAINST TRANSPLANT REJECTION
     Dosage: 0.5 MG, BID
     Route: 065
  7. PROGRAF [Suspect]
     Dosage: 1 MG, BID
     Route: 065
     Dates: start: 20110524
  8. CORTICOSTEROIDS [Suspect]
     Dosage: UNK
     Route: 065

REACTIONS (6)
  - TRANSPLANT REJECTION [None]
  - MALABSORPTION [None]
  - OFF LABEL USE [None]
  - ACUTE RESPIRATORY FAILURE [None]
  - DRUG LEVEL DECREASED [None]
  - ILEUS [None]
